FAERS Safety Report 19845360 (Version 1)
Quarter: 2021Q3

REPORT INFORMATION
  Report Type: Spontaneous
  Country: US (occurrence: US)
  Receive Date: 20210916
  Receipt Date: 20210916
  Transmission Date: 20211014
  Serious: Yes (Other)
  Sender: FDA-Public Use
  Company Number: None

PATIENT
  Age: 27 Year
  Sex: Female
  Weight: 54 kg

DRUGS (5)
  1. DEXAMETHASONE. [Suspect]
     Active Substance: DEXAMETHASONE
     Indication: GINGIVAL DISORDER
     Dosage: ?          QUANTITY:5 TABLET(S);?
     Route: 048
     Dates: start: 20210910, end: 20210913
  2. VITAMIN C [Concomitant]
     Active Substance: ASCORBIC ACID
  3. VITAMIN D3 + K2 [Concomitant]
  4. WOMEN^S MULTIVITAMIN [Concomitant]
  5. ZINC. [Concomitant]
     Active Substance: ZINC

REACTIONS (9)
  - Fatigue [None]
  - Mental disorder [None]
  - Dizziness [None]
  - Depression [None]
  - Panic attack [None]
  - Impaired work ability [None]
  - Anxiety [None]
  - Headache [None]
  - Impaired driving ability [None]

NARRATIVE: CASE EVENT DATE: 20210910
